FAERS Safety Report 8537714-8 (Version None)
Quarter: 2012Q3

REPORT INFORMATION
  Report Type: 
  Country: None (occurrence: None)
  Receive Date: 20120725
  Receipt Date: 20120720
  Transmission Date: 20120928
  Serious: Yes (Other)
  Sender: FDA-Public Use
  Company Number: PHHY2012FR062675

PATIENT
  Age: 17 Year
  Sex: Male

DRUGS (3)
  1. MINOCYCLINE HCL [Suspect]
     Indication: PROPHYLAXIS
     Dosage: 100 MG, PER DAY
  2. MINOCYCLINE HCL [Suspect]
     Dosage: 200 MG, PER DAY
  3. COTRIM [Concomitant]
     Indication: PROPHYLAXIS

REACTIONS (7)
  - ASTHENIA [None]
  - COUGH [None]
  - PERICARDIAL EFFUSION [None]
  - MYALGIA [None]
  - BACK PAIN [None]
  - PERICARDITIS [None]
  - PYREXIA [None]
